FAERS Safety Report 18054505 (Version 1)
Quarter: 2020Q3

REPORT INFORMATION
  Report Type: Spontaneous
  Country: US (occurrence: US)
  Receive Date: 20200722
  Receipt Date: 20200722
  Transmission Date: 20201103
  Serious: Yes (Other)
  Sender: FDA-Public Use
  Company Number: US-SA-2020SA188289

PATIENT

DRUGS (10)
  1. BUPRENORPHINE. [Concomitant]
     Active Substance: BUPRENORPHINE
     Dosage: 5 MCG/HR
  2. FLECAINIDE [Concomitant]
     Active Substance: FLECAINIDE
  3. SUMATRIPTAN. [Concomitant]
     Active Substance: SUMATRIPTAN
     Dosage: 6 MG/0.5
  4. CABERGOLINE. [Concomitant]
     Active Substance: CABERGOLINE
  5. ESTRADIOL. [Concomitant]
     Active Substance: ESTRADIOL
  6. SIMBRINZA [Concomitant]
     Active Substance: BRIMONIDINE TARTRATE\BRINZOLAMIDE
  7. DEXILANT [Concomitant]
     Active Substance: DEXLANSOPRAZOLE
  8. DULOXETINE. [Concomitant]
     Active Substance: DULOXETINE
  9. DUPIXENT [Suspect]
     Active Substance: DUPILUMAB
     Indication: BRONCHITIS
     Dosage: 200 MG, QOW
     Route: 058
     Dates: start: 20190217
  10. FLUCONAZOLE. [Concomitant]
     Active Substance: FLUCONAZOLE

REACTIONS (3)
  - Osteomyelitis [Not Recovered/Not Resolved]
  - Product use in unapproved indication [Unknown]
  - Sinusitis [Not Recovered/Not Resolved]

NARRATIVE: CASE EVENT DATE: 20190217
